FAERS Safety Report 7705765-9 (Version None)
Quarter: 2011Q3

REPORT INFORMATION
  Report Type: 
  Country: None (occurrence: None)
  Receive Date: 20110824
  Receipt Date: 20110824
  Transmission Date: 20111222
  Serious: Yes (Other)
  Sender: FDA-Public Use
  Company Number: None

PATIENT
  Age: 71 Year
  Sex: Female
  Weight: 99.79 kg

DRUGS (2)
  1. LETROZOLE [Suspect]
     Indication: HORMONE THERAPY
     Dosage: 1 TABLET
     Route: 048
     Dates: start: 20110718, end: 20110814
  2. LETROZOLE [Suspect]
     Indication: BREAST CANCER
     Dosage: 1 TABLET
     Route: 048
     Dates: start: 20110718, end: 20110814

REACTIONS (2)
  - PRURITUS [None]
  - PRODUCT SUBSTITUTION ISSUE [None]
